FAERS Safety Report 17922751 (Version 1)
Quarter: 2020Q2

REPORT INFORMATION
  Report Type: Spontaneous
  Country: US (occurrence: US)
  Receive Date: 20200621
  Receipt Date: 20200621
  Transmission Date: 20200714
  Serious: No
  Sender: FDA-Public Use
  Company Number: None

PATIENT
  Age: 70 Year
  Sex: Male

DRUGS (1)
  1. DASATINIB (DASATINIB 100MG TAB) [Suspect]
     Active Substance: DASATINIB
     Dates: start: 20190710, end: 20191217

REACTIONS (2)
  - Pain [None]
  - Pleural effusion [None]

NARRATIVE: CASE EVENT DATE: 20191011
